FAERS Safety Report 16336446 (Version 2)
Quarter: 2019Q2

REPORT INFORMATION
  Report Type: Spontaneous
  Country: GB (occurrence: GB)
  Receive Date: 20190521
  Receipt Date: 20190528
  Transmission Date: 20190711
  Serious: Yes (Hospitalization, Other)
  Sender: FDA-Public Use
  Company Number: GB-MYLANLABS-2019M1046776

PATIENT
  Age: 57 Year
  Sex: Male
  Weight: 114.3 kg

DRUGS (2)
  1. GABAPENTIN. [Suspect]
     Active Substance: GABAPENTIN
     Indication: NERVE INJURY
     Dosage: 300 MILLIGRAM, QD
     Route: 048
     Dates: start: 20180319, end: 20180320
  2. OXYCODONE [Concomitant]
     Active Substance: OXYCODONE
     Dosage: 140 MILLIGRAM, QD

REACTIONS (3)
  - Haemoptysis [Recovered/Resolved]
  - Pneumonia [Recovered/Resolved]
  - Immune system disorder [Recovered/Resolved]

NARRATIVE: CASE EVENT DATE: 20180320
